FAERS Safety Report 11307307 (Version 1)
Quarter: 2015Q3

REPORT INFORMATION
  Report Type: Spontaneous
  Country: CN (occurrence: CN)
  Receive Date: 20150723
  Receipt Date: 20150723
  Transmission Date: 20151125
  Serious: Yes (Disabling)
  Sender: FDA-Public Use
  Company Number: CN-009507513-1507CHN007659

PATIENT
  Age: 47 Year
  Sex: Male

DRUGS (2)
  1. TIENAM [Suspect]
     Active Substance: CILASTATIN SODIUM\IMIPENEM
     Indication: PERITONITIS
     Dosage: 1000 MG Q8H
     Route: 041
     Dates: start: 20150304, end: 20150305
  2. TIGECYCLINE. [Concomitant]
     Active Substance: TIGECYCLINE
     Indication: PERITONITIS
     Dosage: 50 MG, BID
     Route: 041
     Dates: start: 20150303, end: 20150305

REACTIONS (1)
  - Hearing impaired [Recovering/Resolving]

NARRATIVE: CASE EVENT DATE: 20150305
